FAERS Safety Report 7613036-4 (Version None)
Quarter: 2011Q3

REPORT INFORMATION
  Report Type: 
  Country: None (occurrence: None)
  Receive Date: 20110708
  Receipt Date: 20110630
  Transmission Date: 20111222
  Serious: Yes (Other)
  Sender: FDA-Public Use
  Company Number: 967883

PATIENT
  Sex: Female
  Weight: 65 kg

DRUGS (6)
  1. FENTANYL [Concomitant]
  2. DEXAMETHASONE [Concomitant]
  3. PROPOFOL [Concomitant]
  4. SYNTOCINON [Concomitant]
  5. ONDANSETRON [Suspect]
     Indication: PROPHYLAXIS OF NAUSEA AND VOMITING
     Dosage: 4 MG MILLIGRAM(S), INTRAVENOUS
     Route: 042
     Dates: start: 20110616
  6. ACETAMINOPHEN [Concomitant]

REACTIONS (3)
  - EXTRAPYRAMIDAL DISORDER [None]
  - DYSTONIA [None]
  - MUSCLE TWITCHING [None]
